FAERS Safety Report 7393135-5 (Version None)
Quarter: 2011Q2

REPORT INFORMATION
  Report Type: 
  Country: None (occurrence: None)
  Receive Date: 20110404
  Receipt Date: 20110329
  Transmission Date: 20111010
  Serious: Yes (Hospitalization)
  Sender: FDA-Public Use
  Company Number: US-GILEAD-2011-0036432

PATIENT
  Sex: Female

DRUGS (1)
  1. LETAIRIS [Suspect]
     Indication: PRODUCT USED FOR UNKNOWN INDICATION
     Route: 048
     Dates: start: 20110112, end: 20110317

REACTIONS (5)
  - SWELLING FACE [None]
  - CARDIAC FAILURE CONGESTIVE [None]
  - THROMBOSIS [None]
  - RENAL FAILURE [None]
  - DYSPNOEA [None]
